FAERS Safety Report 19028177 (Version 1)
Quarter: 2021Q1

REPORT INFORMATION
  Report Type: Spontaneous
  Country: US (occurrence: US)
  Receive Date: 20210318
  Receipt Date: 20210318
  Transmission Date: 20210420
  Serious: No
  Sender: FDA-Public Use
  Company Number: US-HBT LABS-2021HBT00001

PATIENT
  Sex: Female
  Weight: 67.48 kg

DRUGS (1)
  1. FULVESTRANT. [Suspect]
     Active Substance: FULVESTRANT
     Indication: BREAST CANCER
     Dosage: 500 MG, 1X/MONTH (EVERY 4 WEEKS), INJECTED IN HER GLUTEAL AREA

REACTIONS (1)
  - Injection site discomfort [Recovered/Resolved]
